FAERS Safety Report 7314639-7 (Version None)
Quarter: 2011Q1

REPORT INFORMATION
  Report Type: 
  Country: None (occurrence: None)
  Receive Date: 20110225
  Receipt Date: 20101022
  Transmission Date: 20110831
  Serious: No
  Sender: FDA-Public Use
  Company Number: US-MYLANLABS-2010S1019552

PATIENT
  Age: 14 Year
  Sex: Female

DRUGS (3)
  1. CLARAVIS [Suspect]
  2. AMNESTEEM [Suspect]
     Indication: ACNE
     Dates: end: 20101020
  3. CLARAVIS [Suspect]
     Indication: ACNE

REACTIONS (1)
  - WHITE BLOOD CELL COUNT DECREASED [None]
